FAERS Safety Report 15233207 (Version 1)
Quarter: 2018Q3

REPORT INFORMATION
  Report Type: Spontaneous
  Country: FR (occurrence: FR)
  Receive Date: 20180802
  Receipt Date: 20180802
  Transmission Date: 20181010
  Serious: Yes (Hospitalization)
  Sender: FDA-Public Use
  Company Number: FR-TEVA-2018-FR-933504

PATIENT
  Age: 33 Year
  Sex: Female

DRUGS (4)
  1. ALCOHOL. [Suspect]
     Active Substance: ALCOHOL
     Dosage: NP
     Route: 048
     Dates: start: 20180527, end: 20180527
  2. XANAX [Suspect]
     Active Substance: ALPRAZOLAM
     Indication: INTENTIONAL OVERDOSE
     Dosage: 8 DOSAGE FORMS DAILY;
     Route: 048
     Dates: start: 20180527, end: 20180527
  3. IBUPROFENE [Suspect]
     Active Substance: IBUPROFEN
     Indication: INTENTIONAL OVERDOSE
     Route: 048
     Dates: start: 20180527, end: 20180527
  4. NAPROXEN. [Suspect]
     Active Substance: NAPROXEN
     Indication: INTENTIONAL OVERDOSE
     Route: 048
     Dates: start: 20180527, end: 20180527

REACTIONS (3)
  - Somnolence [Recovered/Resolved]
  - Hyperlipasaemia [Recovered/Resolved]
  - Intentional overdose [Recovered/Resolved]

NARRATIVE: CASE EVENT DATE: 20180527
